FAERS Safety Report 7364159 (Version 3)
Quarter: 2012Q4

REPORT INFORMATION
  Report Type: 
  Country: US (occurrence: US)
  Receive Date: 20100423
  Receipt Date: 20121005
  Transmission Date: 20130627
  Serious: Yes (Other)
  Sender: FDA-Public Use
  Company Number: PHEH2010US03406

PATIENT
  Age: 71 Year
  Sex: Male

DRUGS (1)
  1. AREDIA [Suspect]
     Indication: MULTIPLE MYELOMA
     Dates: end: 200503

REACTIONS (7)
  - Basal cell carcinoma [Unknown]
  - Corneal abrasion [Unknown]
  - Large intestine polyp [Unknown]
  - Myelodysplastic syndrome [Unknown]
  - Paraproteinaemia [Unknown]
  - Hepatic enzyme increased [Unknown]
  - Gastrooesophageal reflux disease [Unknown]
